FAERS Safety Report 21440855 (Version 2)
Quarter: 2022Q4

REPORT INFORMATION
  Report Type: Spontaneous
  Country: FR (occurrence: FR)
  Receive Date: 20221011
  Receipt Date: 20221021
  Transmission Date: 20230113
  Serious: Yes (Other)
  Sender: FDA-Public Use
  Company Number: FR-MYLANLABS-2022M1112423

PATIENT
  Age: 21 Year
  Sex: Male
  Weight: 41 kg

DRUGS (1)
  1. ROCURONIUM [Suspect]
     Active Substance: ROCURONIUM BROMIDE
     Indication: Product used for unknown indication
     Dosage: UNK
     Route: 065

REACTIONS (4)
  - Drug ineffective [Unknown]
  - Endotracheal intubation complication [Unknown]
  - Hypoventilation [Unknown]
  - Product storage error [Unknown]

NARRATIVE: CASE EVENT DATE: 20221001
